FAERS Safety Report 14816750 (Version 7)
Quarter: 2019Q2

REPORT INFORMATION
  Report Type: Report from Study
  Country: US (occurrence: US)
  Receive Date: 20180426
  Receipt Date: 20190418
  Transmission Date: 20190711
  Serious: Yes (Hospitalization)
  Sender: FDA-Public Use
  Company Number: US-ACTELION-A-NJ2017-157015

PATIENT
  Age: 36 Year
  Sex: Female
  Weight: 90.7 kg

DRUGS (9)
  1. UPTRAVI [Suspect]
     Active Substance: SELEXIPAG
     Dosage: 200 MCG, BID
     Route: 048
  2. UPTRAVI [Suspect]
     Active Substance: SELEXIPAG
     Indication: PULMONARY ARTERIAL HYPERTENSION
     Dosage: 600 MCG IN AM, 800 MCG IN PM
     Route: 048
  3. UPTRAVI [Suspect]
     Active Substance: SELEXIPAG
     Dosage: 800 MCG, BID
     Route: 048
  4. UPTRAVI [Suspect]
     Active Substance: SELEXIPAG
     Dosage: 400 MCG IN AM, 600 MCG IN PM
     Route: 048
  5. UPTRAVI [Suspect]
     Active Substance: SELEXIPAG
     Dosage: 200 MCG IN AM, 400 MCG IN PM
     Route: 048
  6. UPTRAVI [Suspect]
     Active Substance: SELEXIPAG
     Dosage: 400 MCG, BID
     Route: 048
     Dates: end: 20170717
  7. LETAIRIS [Concomitant]
     Active Substance: AMBRISENTAN
  8. ADCIRCA [Concomitant]
     Active Substance: TADALAFIL
  9. UPTRAVI [Suspect]
     Active Substance: SELEXIPAG
     Dosage: 400 MCG IN AM, 600 MCG IN PM
     Route: 048

REACTIONS (33)
  - Hypersensitivity [Unknown]
  - Amnesia [Unknown]
  - Mental disorder [Unknown]
  - Diarrhoea [Unknown]
  - Rash [Unknown]
  - Pain in jaw [Unknown]
  - Therapy non-responder [Unknown]
  - Tooth disorder [Unknown]
  - Pain [Unknown]
  - Blood potassium decreased [Unknown]
  - Ascites [Unknown]
  - Headache [Recovering/Resolving]
  - Dizziness [Unknown]
  - Bruxism [Unknown]
  - Hypotension [Recovering/Resolving]
  - Chest pain [Unknown]
  - Confusional state [Unknown]
  - Fluid retention [Unknown]
  - Dehydration [Unknown]
  - Flushing [Unknown]
  - Atrial pressure increased [Unknown]
  - Sluggishness [Unknown]
  - Nausea [Unknown]
  - Fatigue [Not Recovered/Not Resolved]
  - Influenza like illness [Unknown]
  - Heart rate increased [Unknown]
  - Migraine [Unknown]
  - Malaise [Unknown]
  - Toothache [Unknown]
  - Weight fluctuation [Unknown]
  - Vomiting [Unknown]
  - Dementia [Unknown]
  - Depression [Unknown]

NARRATIVE: CASE EVENT DATE: 20180215
